FAERS Safety Report 17109369 (Version 2)
Quarter: 2019Q4

REPORT INFORMATION
  Report Type: Spontaneous
  Country: IT (occurrence: IT)
  Receive Date: 20191204
  Receipt Date: 20191220
  Transmission Date: 20200122
  Serious: Yes (Hospitalization)
  Sender: FDA-Public Use
  Company Number: IT-B.I. PHARMACEUTICALS,INC./RIDGEFIELD-2019-BI-117079

PATIENT
  Age: 86 Year
  Sex: Female

DRUGS (1)
  1. PRADAXA [Suspect]
     Active Substance: DABIGATRAN ETEXILATE MESYLATE
     Indication: ATRIAL FIBRILLATION
     Dosage: UNIT DOSE: 110; DAILY DOSE: 220
     Route: 065
     Dates: end: 20191128

REACTIONS (2)
  - Fracture displacement [Recovering/Resolving]
  - Pelvic haematoma [Recovering/Resolving]

NARRATIVE: CASE EVENT DATE: 20191126
